FAERS Safety Report 8867613 (Version 1)
Quarter: 2012Q4

REPORT INFORMATION
  Report Type: 
  Country: US (occurrence: US)
  Receive Date: 20121025
  Receipt Date: 20121025
  Transmission Date: 20130627
  Serious: No
  Sender: FDA-Public Use
  Company Number: US-AMGEN-USASP2012017482

PATIENT
  Age: 61 Year
  Sex: Female
  Weight: 92.06 kg

DRUGS (10)
  1. ENBREL [Suspect]
     Indication: PRODUCT USED FOR UNKNOWN INDICATION
     Dosage: 50 mg, qwk
     Route: 058
  2. METHOTREXATE [Concomitant]
     Dosage: 2.5 mg, UNK
  3. SINGULAR [Concomitant]
     Dosage: 10 mg, UNK
  4. BUTALBIT/APAP/CAFFEINE PLUS [Concomitant]
     Dosage: UNK
  5. QUINAPRIL [Concomitant]
     Dosage: 10 mg, UNK
  6. SIMVASTATIN [Concomitant]
     Dosage: 5 mg, UNK
  7. VITAMIN D /00107901/ [Concomitant]
     Dosage: UNK
  8. VITAMIN B12                        /00056201/ [Concomitant]
     Dosage: 250 mug, UNK
  9. FOLIC ACID [Concomitant]
     Dosage: UNK
  10. SINUS RELIEF                       /00076302/ [Concomitant]
     Dosage: UNK

REACTIONS (2)
  - Neck pain [Unknown]
  - Sinusitis [Unknown]
